FAERS Safety Report 15023565 (Version 1)
Quarter: 2018Q2

REPORT INFORMATION
  Report Type: Spontaneous
  Country: DE (occurrence: DE)
  Receive Date: 20180618
  Receipt Date: 20180618
  Transmission Date: 20180711
  Serious: Yes (Hospitalization)
  Sender: FDA-Public Use
  Company Number: DE-TEVA-2018-DE-907586

PATIENT
  Age: 80 Year
  Sex: Female
  Weight: 60 kg

DRUGS (16)
  1. ALLOPURINOL. [Concomitant]
     Active Substance: ALLOPURINOL
     Dosage: 150 MG, 1-0-0-0, TABLETTEN
     Route: 048
  2. SPIRONOLACTONE. [Concomitant]
     Active Substance: SPIRONOLACTONE
     Dosage: 50 MG, 1-0-0-0, TABLETTEN
     Route: 048
  3. CLOPIDOGREL [Suspect]
     Active Substance: CLOPIDOGREL BISULFATE
     Dosage: 75 MG, 1-0-0-0, TABLETTEN
     Route: 048
  4. ENOXAPARIN [Suspect]
     Active Substance: ENOXAPARIN
     Dosage: 20 MG, 0-0-1-0, INJEKTIONS-/INFUSIONSL?SUNG
     Route: 058
  5. FENTANYL. [Concomitant]
     Active Substance: FENTANYL
     Dosage: 175 ?G, ALLE 3 D, PFLASTER TRANSDERMAL
     Route: 062
  6. PREDNISOLONE. [Concomitant]
     Active Substance: PREDNISOLONE
     Dosage: 5 MG, 1-0-0-0, TABLETTEN
     Route: 048
  7. NEBIVOLOL. [Concomitant]
     Active Substance: NEBIVOLOL
     Dosage: 5 MG, 1-0-1-0, TABLETTEN
     Route: 048
  8. OMEPRAZOL [Concomitant]
     Active Substance: OMEPRAZOLE
     Dosage: 40 MG, 1-0-0-0, TABLETTEN
     Route: 048
  9. ZOPICLONE [Concomitant]
     Active Substance: ZOPICLONE
     Dosage: 7.5 MG, BEDARF, TABLETTEN
     Route: 048
  10. DULOXETINE. [Concomitant]
     Active Substance: DULOXETINE
     Dosage: 60 MG, 0-0-1-0, TABLETTEN
     Route: 048
  11. METAMIZOL [Concomitant]
     Active Substance: METAMIZOLE SODIUM
     Dosage: 30 GTT, 1-1-1-0, TROPFEN
     Route: 048
  12. DIGITOXIN [Concomitant]
     Active Substance: DIGITOXIN
     Dosage: 0.07 MG, 1-0-0-0, TABLETTEN
     Route: 048
  13. TORASEMID [Concomitant]
     Active Substance: TORSEMIDE
     Dosage: 100 MG, 1-0-0-0, TABLETTEN
     Route: 048
  14. ACETYLSALICYLSAEURE [Suspect]
     Active Substance: ASPIRIN
     Dosage: 50 MG, 1-0-0-0, TABLETTEN
     Route: 048
  15. CITALOPRAM [Concomitant]
     Active Substance: CITALOPRAM HYDROBROMIDE
     Dosage: 20 MG, 1-0-0-0, TABLETTEN
     Route: 048
  16. ATORVASTATIN [Concomitant]
     Active Substance: ATORVASTATIN
     Dosage: 10 MG, 0-0-1-0, TABLETTEN
     Route: 048

REACTIONS (7)
  - Anaemia [Unknown]
  - Dyspnoea [Unknown]
  - Drug prescribing error [Unknown]
  - Haemoglobin decreased [Unknown]
  - General physical health deterioration [Unknown]
  - Fatigue [Unknown]
  - Platelet disorder [Unknown]

NARRATIVE: CASE EVENT DATE: 20160714
